FAERS Safety Report 25494451 (Version 4)
Quarter: 2025Q4

REPORT INFORMATION
  Report Type: Report from Study
  Country: US (occurrence: None)
  Receive Date: 20250630
  Receipt Date: 20251222
  Transmission Date: 20260118
  Serious: Yes (Other)
  Sender: UCB
  Company Number: US-UCBSA-2025038938

PATIENT
  Weight: 112.4 kg

DRUGS (2)
  1. BIMEKIZUMAB [Suspect]
     Active Substance: BIMEKIZUMAB
     Indication: Psoriasis
     Dosage: 320 MILLIGRAM, EV 4 WEEKS
  2. BIMEKIZUMAB [Suspect]
     Active Substance: BIMEKIZUMAB
     Dosage: 320 MILLIGRAM, EV 8 WEEKS

REACTIONS (7)
  - Myocardial infarction [Unknown]
  - Memory impairment [Unknown]
  - Psoriasis [Not Recovered/Not Resolved]
  - Road traffic accident [Unknown]
  - Intentional dose omission [Unknown]
  - Therapeutic product effect decreased [Unknown]
  - Therapeutic response unexpected [Unknown]
